FAERS Safety Report 9917620 (Version 2)
Quarter: 2014Q2

REPORT INFORMATION
  Report Type: Spontaneous
  Country: DK (occurrence: DE)
  Receive Date: 20140221
  Receipt Date: 20140527
  Transmission Date: 20141212
  Serious: Yes (Life-Threatening, Hospitalization, Disabling, Congenital Anomaly)
  Sender: FDA-Public Use
  Company Number: DE-FRI-1000054489

PATIENT
  Age: 0 Day
  Sex: Female
  Weight: 2.3 kg

DRUGS (3)
  1. CITALOPRAM [Suspect]
     Dosage: 20 MG
     Route: 064
  2. INSULIN [Concomitant]
     Route: 064
  3. ASTHMA-SPRAY [Concomitant]
     Route: 064

REACTIONS (15)
  - Atrial septal defect [Not Recovered/Not Resolved]
  - Ebstein^s anomaly [Not Recovered/Not Resolved]
  - Pulmonary valve stenosis congenital [Not Recovered/Not Resolved]
  - Congenital tricuspid valve incompetence [Not Recovered/Not Resolved]
  - Patent ductus arteriosus [Recovered/Resolved]
  - Pyloric stenosis [Recovered/Resolved]
  - Bradycardia [Recovered/Resolved]
  - Respiratory failure [Recovered/Resolved]
  - Cardiogenic shock [Recovered/Resolved]
  - Multi-organ failure [Recovered/Resolved]
  - Hypocalcaemia [Unknown]
  - Ascites [Recovered/Resolved]
  - Premature baby [Unknown]
  - Low birth weight baby [Recovering/Resolving]
  - Foetal exposure during pregnancy [Recovered/Resolved]
